FAERS Safety Report 19469504 (Version 3)
Quarter: 2021Q3

REPORT INFORMATION
  Report Type: Spontaneous
  Country: US (occurrence: US)
  Receive Date: 20210629
  Receipt Date: 20210908
  Transmission Date: 20211014
  Serious: No
  Sender: FDA-Public Use
  Company Number: US-ASTRAZENECA-2021A523963

PATIENT
  Age: 25122 Day
  Sex: Female
  Weight: 46.3 kg

DRUGS (1)
  1. SYMBICORT [Suspect]
     Active Substance: BUDESONIDE\FORMOTEROL FUMARATE DIHYDRATE
     Indication: ASTHMA
     Dosage: 160/4.5 MCG, 2 PUFFS TWO TIMES A DAY
     Route: 055
     Dates: start: 2006

REACTIONS (15)
  - Dry throat [Unknown]
  - Dyspnoea [Unknown]
  - Tremor [Unknown]
  - Vocal cord disorder [Unknown]
  - Device delivery system issue [Unknown]
  - Device defective [Unknown]
  - Wrong technique in product usage process [Unknown]
  - Underweight [Unknown]
  - Device issue [Unknown]
  - Hypothyroidism [Unknown]
  - Therapy change [Unknown]
  - Speech disorder [Unknown]
  - Feeling abnormal [Unknown]
  - Body height decreased [Unknown]
  - Device use issue [Unknown]

NARRATIVE: CASE EVENT DATE: 20210608
